FAERS Safety Report 19797835 (Version 1)
Quarter: 2021Q3

REPORT INFORMATION
  Report Type: Spontaneous
  Country: US (occurrence: US)
  Receive Date: 20210906
  Receipt Date: 20210906
  Transmission Date: 20211014
  Serious: No
  Sender: FDA-Public Use
  Company Number: None

PATIENT
  Age: 16 Year
  Sex: Male
  Weight: 63 kg

DRUGS (1)
  1. BUPROPION HYDROCHLORIDE. [Suspect]
     Active Substance: BUPROPION HYDROCHLORIDE
     Indication: DEPRESSION
     Dosage: ?          QUANTITY:1 TABLET(S);?
     Route: 048
     Dates: start: 20210812, end: 20210906

REACTIONS (6)
  - Decreased appetite [None]
  - Condition aggravated [None]
  - Depression [None]
  - Pain in extremity [None]
  - Facial pain [None]
  - Hyperaesthesia [None]

NARRATIVE: CASE EVENT DATE: 20210906
